FAERS Safety Report 9938086 (Version 4)
Quarter: 2022Q1

REPORT INFORMATION
  Report Type: Spontaneous
  Country: US (occurrence: US)
  Receive Date: 20140303
  Receipt Date: 20220128
  Transmission Date: 20220423
  Serious: No
  Sender: FDA-Public Use
  Company Number: US-009507513-1402USA011091

PATIENT
  Age: 57 Year
  Sex: Female

DRUGS (6)
  1. PROVENTIL [Suspect]
     Active Substance: ALBUTEROL
     Indication: Asthma
     Dosage: UNK
     Dates: start: 1971
  2. PROVENTIL [Suspect]
     Active Substance: ALBUTEROL
     Dosage: UNK, PRN
  3. PROVENTIL [Suspect]
     Active Substance: ALBUTEROL
     Dosage: INHALER B: 2 PUFFS
     Dates: start: 20200825
  4. PROVENTIL [Suspect]
     Active Substance: ALBUTEROL
     Dosage: INHALER A: 2 PUFFS
     Dates: start: 20200908
  5. PROVENTIL [Suspect]
     Active Substance: ALBUTEROL
     Dosage: UNKNOWN BY REPORTER/PRN
     Dates: start: 202201
  6. DIOVAN HCT [Concomitant]
     Active Substance: HYDROCHLOROTHIAZIDE\VALSARTAN

REACTIONS (15)
  - Visual impairment [Not Recovered/Not Resolved]
  - Wheezing [Recovering/Resolving]
  - Wheezing [Unknown]
  - Product quality issue [Unknown]
  - Product dose omission issue [Unknown]
  - Product quality issue [Unknown]
  - Product quality issue [Unknown]
  - Product dose omission issue [Unknown]
  - Product quality issue [Unknown]
  - Incorrect dose administered by product [Unknown]
  - Poor quality product administered [Unknown]
  - Product dose omission issue [Unknown]
  - Device malfunction [Unknown]
  - Product delivery mechanism issue [Unknown]
  - Product availability issue [Unknown]

NARRATIVE: CASE EVENT DATE: 20140220
